FAERS Safety Report 6707894-5 (Version None)
Quarter: 2010Q2

REPORT INFORMATION
  Report Type: 
  Country: None (occurrence: None)
  Receive Date: 20100503
  Receipt Date: 20090423
  Transmission Date: 20101027
  Serious: No
  Sender: FDA-Public Use
  Company Number: US-ASTRAZENECA-2009UW10280

PATIENT
  Age: 54 Year
  Sex: Female
  Weight: 72.6 kg

DRUGS (4)
  1. NEXIUM [Suspect]
     Indication: GASTROOESOPHAGEAL REFLUX DISEASE
     Route: 048
     Dates: start: 20080101
  2. NEXIUM [Suspect]
     Route: 048
     Dates: start: 20080101, end: 20090101
  3. IMIPRAMINE [Concomitant]
     Indication: ANTIDEPRESSANT THERAPY
  4. XANAX [Concomitant]

REACTIONS (3)
  - CHEST PAIN [None]
  - CONSTIPATION [None]
  - MUSCULOSKELETAL PAIN [None]
